FAERS Safety Report 4735509-4 (Version None)
Quarter: 2005Q3

REPORT INFORMATION
  Report Type: 
  Country: None (occurrence: None)
  Receive Date: 20050801
  Receipt Date: 20050801
  Transmission Date: 20060218
  Serious: Yes (Life-Threatening, Hospitalization)
  Sender: FDA-Public Use
  Company Number: None

PATIENT
  Age: 85 Year
  Sex: Male
  Weight: 57 kg

DRUGS (4)
  1. WARFARIN 5MG [Suspect]
     Indication: ATRIAL FIBRILLATION
     Dosage: 5MG MWF , 2.5 ROW PO
     Route: 048
  2. WARFARIN 5MG [Suspect]
     Indication: PERIPHERAL VASCULAR DISORDER
     Dosage: 5MG MWF , 2.5 ROW PO
     Route: 048
  3. ASPIRIN [Suspect]
     Indication: ATRIAL FIBRILLATION
     Dosage: 81MG PO DAILY
     Route: 048
  4. ASPIRIN [Suspect]
     Indication: PERIPHERAL VASCULAR DISORDER
     Dosage: 81MG PO DAILY
     Route: 048

REACTIONS (3)
  - DIVERTICULUM INTESTINAL [None]
  - GASTROINTESTINAL ARTERIOVENOUS MALFORMATION [None]
  - GASTROINTESTINAL HAEMORRHAGE [None]
